FAERS Safety Report 4596599-5 (Version None)
Quarter: 2005Q1

REPORT INFORMATION
  Report Type: 
  Country: None (occurrence: None)
  Receive Date: 20050228
  Receipt Date: 20050218
  Transmission Date: 20050727
  Serious: Yes (Hospitalization)
  Sender: FDA-Public Use
  Company Number: 10226

PATIENT
  Age: 55 Year
  Sex: Male

DRUGS (2)
  1. DACARBAZINE [Suspect]
     Indication: MALIGNANT MELANOMA
     Dosage: 2000 MG IV
     Route: 042
     Dates: start: 20020508, end: 20020508
  2. GENASENSE [Suspect]
     Indication: MALIGNANT MELANOMA
     Dosage: 2835 MG IV
     Route: 042
     Dates: start: 20020503, end: 20020808

REACTIONS (2)
  - CENTRAL LINE INFECTION [None]
  - SEPSIS [None]
